FAERS Safety Report 24017313 (Version 1)
Quarter: 2024Q2

REPORT INFORMATION
  Report Type: Spontaneous
  Country: IL (occurrence: IL)
  Receive Date: 20240627
  Receipt Date: 20240627
  Transmission Date: 20240716
  Serious: Yes (Other)
  Sender: FDA-Public Use
  Company Number: IL-Merck Healthcare KGaA-2024033161

PATIENT
  Age: 48 Year
  Sex: Female

DRUGS (2)
  1. EUTHYROX [Suspect]
     Active Substance: LEVOTHYROXINE SODIUM
     Indication: Product used for unknown indication
  2. AMITRIPTYLINE [Concomitant]
     Active Substance: AMITRIPTYLINE
     Indication: Product used for unknown indication
     Dosage: DOSAGE: 100

REACTIONS (12)
  - Hormone level abnormal [Unknown]
  - Psychomotor hyperactivity [Unknown]
  - Endometrial disorder [Unknown]
  - Weight increased [Unknown]
  - Psychomotor hyperactivity [Unknown]
  - Emotional disorder [Unknown]
  - Nervousness [Unknown]
  - Depressed mood [Unknown]
  - Dry skin [Unknown]
  - Dysphonia [Unknown]
  - Blood test abnormal [Unknown]
  - Menstrual disorder [Unknown]
